FAERS Safety Report 8110793-8 (Version None)
Quarter: 2012Q1

REPORT INFORMATION
  Report Type: 
  Country: None (occurrence: None)
  Receive Date: 20120203
  Receipt Date: 20120123
  Transmission Date: 20120608
  Serious: Yes (Death, Hospitalization)
  Sender: FDA-Public Use
  Company Number: US-JNJFOC-20120109845

PATIENT
  Sex: Female

DRUGS (4)
  1. REMICADE [Suspect]
     Route: 042
     Dates: start: 20111128
  2. ARAVA [Concomitant]
     Route: 065
  3. REMICADE [Suspect]
     Indication: PRODUCT USED FOR UNKNOWN INDICATION
     Route: 042
  4. PREDNISONE TAB [Concomitant]
     Route: 065

REACTIONS (2)
  - DEATH [None]
  - HISTOPLASMOSIS [None]
